FAERS Safety Report 4618283-1 (Version None)
Quarter: 2005Q1

REPORT INFORMATION
  Report Type: 
  Country: None (occurrence: None)
  Receive Date: 20050323
  Receipt Date: 20041104
  Transmission Date: 20050727
  Serious: Yes (Hospitalization)
  Sender: FDA-Public Use
  Company Number: MED000043

PATIENT
  Sex: Female

DRUGS (1)
  1. LIDOCAINE HCL 0.1% AND DEXTROSE 5% [Suspect]
     Indication: ANGIOPLASTY
     Dosage: INTRAVENOUS
     Route: 042

REACTIONS (3)
  - CONVULSION [None]
  - MEDICATION ERROR [None]
  - OVERDOSE [None]
